FAERS Safety Report 4809802-0 (Version None)
Quarter: 2005Q4

REPORT INFORMATION
  Report Type: 
  Country: None (occurrence: None)
  Receive Date: 20051024
  Receipt Date: 20050913
  Transmission Date: 20060501
  Serious: Yes (Other)
  Sender: FDA-Public Use
  Company Number: 8528

PATIENT
  Age: 11 Year
  Sex: Male

DRUGS (1)
  1. SEPTOCAINE [Suspect]
     Indication: LOCAL ANAESTHESIA
     Dosage: ALMOST 1 CARPULE INJECT

REACTIONS (2)
  - CONTUSION [None]
  - HYPOAESTHESIA [None]
